FAERS Safety Report 8612801-4 (Version None)
Quarter: 2012Q3

REPORT INFORMATION
  Report Type: 
  Country: None (occurrence: None)
  Receive Date: 20120822
  Receipt Date: 20120404
  Transmission Date: 20120928
  Serious: No
  Sender: FDA-Public Use
  Company Number: US-ASTRAZENECA-2009UW15812

PATIENT
  Age: 56 Year
  Sex: Female
  Weight: 70.3 kg

DRUGS (8)
  1. NEXIUM [Suspect]
     Route: 048
  2. SINGULAIR [Concomitant]
  3. CLARITIN [Concomitant]
     Dosage: EVERY DAY
  4. ADVIL [Concomitant]
     Indication: ARTHRITIS
     Dosage: AS NEEDED
  5. MOBIC [Concomitant]
     Indication: ARTHRITIS
     Dosage: AS NEEDED
  6. NEXIUM [Suspect]
     Indication: GASTROOESOPHAGEAL REFLUX DISEASE
     Route: 048
  7. SYMBICORT [Suspect]
     Indication: COUGH
     Dosage: STRENGTH UNKNOWN, 2 PUFFS BID
     Route: 055
  8. VITAMINS AND SUPPLEMENTS [Concomitant]

REACTIONS (10)
  - COUGH [None]
  - FLUID RETENTION [None]
  - FEELING JITTERY [None]
  - OFF LABEL USE [None]
  - INTENTIONAL DRUG MISUSE [None]
  - CHOKING [None]
  - WEIGHT INCREASED [None]
  - HIATUS HERNIA [None]
  - UPPER-AIRWAY COUGH SYNDROME [None]
  - HEADACHE [None]
